FAERS Safety Report 16177340 (Version 2)
Quarter: 2019Q2

REPORT INFORMATION
  Report Type: Spontaneous
  Country: CN (occurrence: CN)
  Receive Date: 20190410
  Receipt Date: 20190413
  Transmission Date: 20190711
  Serious: Yes (Other)
  Sender: FDA-Public Use
  Company Number: CN-ROCHE-2299351

PATIENT
  Age: 46 Year
  Sex: Female

DRUGS (8)
  1. EPIRUBICIN [Concomitant]
     Active Substance: EPIRUBICIN
     Dosage: 6 CYCLES
     Route: 065
     Dates: start: 201209
  2. FLUOROURACIL. [Concomitant]
     Active Substance: FLUOROURACIL
     Dosage: 6 CYCLES
     Route: 065
     Dates: start: 201209
  3. HERCEPTIN [Suspect]
     Active Substance: TRASTUZUMAB
     Indication: INVASIVE DUCTAL BREAST CARCINOMA
     Route: 042
     Dates: start: 20131230
  4. PYROTINIB [Suspect]
     Active Substance: PYROTINIB
     Indication: INVASIVE DUCTAL BREAST CARCINOMA
     Route: 065
  5. CYCLOPHOSPHAMIDE. [Concomitant]
     Active Substance: CYCLOPHOSPHAMIDE
     Dosage: 6 CYCLES
     Route: 065
     Dates: start: 201209
  6. DOCETAXEL. [Concomitant]
     Active Substance: DOCETAXEL
     Dosage: 6 CYCLES
     Route: 065
     Dates: start: 201209
  7. HERCEPTIN [Suspect]
     Active Substance: TRASTUZUMAB
     Dosage: DAY1
     Route: 042
     Dates: start: 201402, end: 201502
  8. DOCETAXEL. [Concomitant]
     Active Substance: DOCETAXEL
     Route: 065
     Dates: start: 20131230

REACTIONS (4)
  - Bone marrow failure [Unknown]
  - Diarrhoea [Unknown]
  - Pyrexia [Unknown]
  - Palmar-plantar erythrodysaesthesia syndrome [Unknown]
